FAERS Safety Report 10058313 (Version 1)
Quarter: 2014Q2

REPORT INFORMATION
  Report Type: Spontaneous
  Country: FR (occurrence: FR)
  Receive Date: 20140404
  Receipt Date: 20140404
  Transmission Date: 20141212
  Serious: Yes (Life-Threatening, Hospitalization, Other)
  Sender: FDA-Public Use
  Company Number: FR-ELI_LILLY_AND_COMPANY-FR201404001141

PATIENT
  Age: 79 Year
  Sex: Female

DRUGS (5)
  1. OPTRUMA [Suspect]
     Indication: PRODUCT USED FOR UNKNOWN INDICATION
     Dosage: 60 MG, UNK
     Route: 048
  2. ALDALIX [Concomitant]
     Route: 065
  3. AVLOCARDYL                         /00030001/ [Concomitant]
     Dosage: 160 MG, UNK
     Route: 065
  4. AMLOR [Concomitant]
     Dosage: 5 MG, UNKNOWN
     Route: 065
  5. BEFIZAL [Concomitant]
     Dosage: 400 MG, UNK
     Route: 065

REACTIONS (4)
  - Cerebral venous thrombosis [Recovered/Resolved with Sequelae]
  - Cerebral haematoma [Not Recovered/Not Resolved]
  - Status epilepticus [Not Recovered/Not Resolved]
  - Hemiplegia [Not Recovered/Not Resolved]
